FAERS Safety Report 18191862 (Version 1)
Quarter: 2020Q3

REPORT INFORMATION
  Report Type: Spontaneous
  Country: US (occurrence: US)
  Receive Date: 20200824
  Receipt Date: 20200824
  Transmission Date: 20201103
  Serious: Yes (Hospitalization)
  Sender: FDA-Public Use
  Company Number: None

PATIENT
  Age: 77 Year
  Sex: Female
  Weight: 58.4 kg

DRUGS (1)
  1. LORAZEPAM INJECTION [Suspect]
     Active Substance: LORAZEPAM
     Indication: ALCOHOL WITHDRAWAL SYNDROME
     Route: 042
     Dates: start: 20200817, end: 20200819

REACTIONS (3)
  - Depressed level of consciousness [None]
  - Mental status changes [None]
  - Somnolence [None]

NARRATIVE: CASE EVENT DATE: 20200819
